FAERS Safety Report 15116618 (Version 3)
Quarter: 2018Q4

REPORT INFORMATION
  Report Type: Spontaneous
  Country: US (occurrence: US)
  Receive Date: 20180706
  Receipt Date: 20181003
  Transmission Date: 20190204
  Serious: No
  Sender: FDA-Public Use
  Company Number: US-ASTRAZENECA-2018SE76564

PATIENT
  Age: 20628 Day
  Sex: Male
  Weight: 126.1 kg

DRUGS (10)
  1. METFORMIN [Concomitant]
     Active Substance: METFORMIN HYDROCHLORIDE
     Indication: DIABETES MELLITUS
     Route: 048
  2. IRON [Concomitant]
     Active Substance: IRON
     Indication: BLOOD IRON DECREASED
     Route: 048
     Dates: start: 201803
  3. LISINOPRIL. [Suspect]
     Active Substance: LISINOPRIL
     Indication: BLOOD PRESSURE MEASUREMENT
     Route: 048
  4. LANTUS [Concomitant]
     Active Substance: INSULIN GLARGINE
     Indication: DIABETES MELLITUS
  5. HYDRODIURIL [Concomitant]
     Active Substance: HYDROCHLOROTHIAZIDE
     Route: 048
  6. VITAMIN B12 [Concomitant]
     Active Substance: CYANOCOBALAMIN
  7. HUMALOG [Concomitant]
     Active Substance: INSULIN LISPRO
     Indication: DIABETES MELLITUS
  8. LIPITOR [Concomitant]
     Active Substance: ATORVASTATIN CALCIUM
     Route: 048
     Dates: start: 2017
  9. PULMICORT FLEXHALER [Suspect]
     Active Substance: BUDESONIDE
     Indication: ASTHMA
     Route: 055
     Dates: start: 20180523, end: 20180830
  10. TOPROL XL [Suspect]
     Active Substance: METOPROLOL SUCCINATE
     Route: 048

REACTIONS (7)
  - Product quality issue [Unknown]
  - Product dose omission [Unknown]
  - Weight decreased [Unknown]
  - Drug ineffective [Unknown]
  - Intentional product misuse [Unknown]
  - Wheezing [Unknown]
  - Weight fluctuation [Unknown]

NARRATIVE: CASE EVENT DATE: 20180527
